FAERS Safety Report 4836458-3 (Version None)
Quarter: 2005Q4

REPORT INFORMATION
  Report Type: 
  Country: None (occurrence: None)
  Receive Date: 20051123
  Receipt Date: 20050912
  Transmission Date: 20060501
  Serious: Yes (Death, Hospitalization, Other)
  Sender: FDA-Public Use
  Company Number: PHNU2005DE03158

PATIENT
  Sex: Female

DRUGS (11)
  1. ZOMETA [Suspect]
     Indication: METASTASES TO BONE
     Dosage: 4 MG, QMO
  2. HERCEPTIN [Concomitant]
     Dosage: 450 MG, UNK
     Dates: start: 20040112, end: 20040501
  3. HERCEPTIN [Concomitant]
     Dosage: 450 MG, UNK
     Dates: start: 20040924, end: 20041015
  4. HERCEPTIN [Concomitant]
     Dosage: 450 MG, UNK
     Dates: start: 20050104
  5. TAXOTERE [Concomitant]
     Dosage: 65 MG, UNK
     Dates: start: 20040112, end: 20040501
  6. TAXOL [Concomitant]
     Dosage: 100 MG, QW
     Dates: start: 20050104
  7. VINORELBINE [Concomitant]
     Dosage: 42 MG, UNK
     Dates: start: 20050610, end: 20050811
  8. MITOXANTRONE [Concomitant]
     Dosage: 20.4 MG, UNK
     Dates: start: 20050914
  9. KEVATRIL [Concomitant]
     Route: 065
  10. DEXAMETHASONE [Concomitant]
     Dosage: 4 MG, UNK
     Route: 065
  11. RADIOTHERAPY [Concomitant]
     Indication: METASTASES TO CENTRAL NERVOUS SYSTEM
     Dosage: 30 GY, UNK
     Route: 061

REACTIONS (7)
  - BIOPSY BONE ABNORMAL [None]
  - DENTAL OPERATION [None]
  - DENTAL TREATMENT [None]
  - METASTASES TO LIVER [None]
  - OSTEONECROSIS [None]
  - PLASTIC SURGERY [None]
  - TOOTH EXTRACTION [None]
